FAERS Safety Report 11214573 (Version 1)
Quarter: 2015Q2

REPORT INFORMATION
  Report Type: Report from Study
  Country: BR (occurrence: BR)
  Receive Date: 20150624
  Receipt Date: 20150624
  Transmission Date: 20150821
  Serious: Yes (Other)
  Sender: FDA-Public Use
  Company Number: PHHY2015BR071811

PATIENT
  Sex: Female
  Weight: 52 kg

DRUGS (1)
  1. ACLASTA [Suspect]
     Active Substance: ZOLEDRONIC ACID
     Indication: OSTEOPOROSIS
     Dosage: 5 MG, PER YEAR
     Route: 042
     Dates: start: 201412

REACTIONS (7)
  - Fall [Unknown]
  - Depressed mood [Unknown]
  - Asthenia [Unknown]
  - Adrenal insufficiency [Unknown]
  - Syncope [Unknown]
  - Gait disturbance [Unknown]
  - Malaise [Unknown]
